FAERS Safety Report 21083351 (Version 1)
Quarter: 2022Q3

REPORT INFORMATION
  Report Type: Spontaneous
  Country: US (occurrence: None)
  Receive Date: 20220714
  Receipt Date: 20220714
  Transmission Date: 20221027
  Serious: Yes (Hospitalization)
  Sender: FDA-Public Use
  Company Number: None

PATIENT
  Age: 81 Year
  Sex: Male
  Weight: 58.97 kg

DRUGS (22)
  1. INLYTA [Suspect]
     Active Substance: AXITINIB
     Indication: Renal cancer
     Dosage: 5MG TWICE A DAY ORAL?
     Route: 048
     Dates: start: 20220315
  2. CALCIUM\VITAMIN D [Concomitant]
     Active Substance: CALCIUM\VITAMIN D
  3. CIALIS [Concomitant]
  4. CLONDIINE HCI [Concomitant]
  5. DEXAMETHASONE [Concomitant]
  6. DICLOFENAC SODIUM [Concomitant]
  7. FUROSEMIDE [Concomitant]
     Active Substance: FUROSEMIDE
  8. GABAPENTIN [Concomitant]
  9. GAVILYTE G [Concomitant]
     Active Substance: POLYETHYLENE GLYCOL 3350\POTASSIUM CHLORIDE\SODIUM BICARBONATE\SODIUM CHLORIDE\SODIUM SULFATE
  10. GLIMEPIRIDE [Concomitant]
  11. HYDROCODONE-ACETAMINOPHEN [Concomitant]
  12. LINZESS [Concomitant]
  13. MELOXICAM [Concomitant]
     Active Substance: MELOXICAM
  14. METFORMIN [Concomitant]
  15. METHOCARBAMOL [Concomitant]
  16. METOPROLOL [Concomitant]
  17. TARTRATE NALOXONE [Concomitant]
  18. NIFEDIPINE ER [Concomitant]
  19. POTASSIUM CHLORIDE [Concomitant]
  20. SENNA-DOCUSATE [Concomitant]
  21. SULFAMETHOXAZOLE-TRIMETHOPRIM [Concomitant]
  22. TAMSULOSIN HCI [Concomitant]

REACTIONS (1)
  - Hospitalisation [None]
